FAERS Safety Report 14115549 (Version 2)
Quarter: 2017Q4

REPORT INFORMATION
  Report Type: Spontaneous
  Country: US (occurrence: US)
  Receive Date: 20171023
  Receipt Date: 20171106
  Transmission Date: 20180321
  Serious: Yes (Other)
  Sender: FDA-Public Use
  Company Number: US-AMGEN-USASP2017157568

PATIENT
  Age: 56 Year
  Sex: Female

DRUGS (3)
  1. PROLIA [Suspect]
     Active Substance: DENOSUMAB
     Indication: OSTEOPOROSIS POSTMENOPAUSAL
     Dosage: UNK
     Route: 065
     Dates: start: 201706
  2. INSULIN [Concomitant]
     Active Substance: INSULIN NOS
  3. VITAMIN D [Concomitant]
     Active Substance: CHOLECALCIFEROL
     Dosage: 50000 UNIT, QWK

REACTIONS (10)
  - Rash papular [Not Recovered/Not Resolved]
  - Chest pain [Unknown]
  - Bone pain [Recovered/Resolved]
  - Oral candidiasis [Recovered/Resolved]
  - Blood calcium decreased [Unknown]
  - Loss of consciousness [Unknown]
  - Immune system disorder [Unknown]
  - Oral mucosal blistering [Unknown]
  - Pain in jaw [Unknown]
  - Hypotension [Unknown]

NARRATIVE: CASE EVENT DATE: 2017
